FAERS Safety Report 16493561 (Version 1)
Quarter: 2019Q2

REPORT INFORMATION
  Report Type: Spontaneous
  Country: BE (occurrence: BE)
  Receive Date: 20190628
  Receipt Date: 20190628
  Transmission Date: 20190711
  Serious: Yes (Life-Threatening)
  Sender: FDA-Public Use
  Company Number: BE-BAYER-2019-122793

PATIENT
  Age: 60 Year
  Sex: Male
  Weight: 66 kg

DRUGS (1)
  1. AVELOX [Suspect]
     Active Substance: MOXIFLOXACIN HYDROCHLORIDE
     Indication: INFECTION
     Dosage: 400 MG, QD
     Route: 048
     Dates: start: 20170712, end: 20170727

REACTIONS (2)
  - Tendonitis [Unknown]
  - Aortic dissection [Unknown]

NARRATIVE: CASE EVENT DATE: 20170927
